FAERS Safety Report 11289524 (Version 1)
Quarter: 2015Q3

REPORT INFORMATION
  Report Type: Report from Study
  Country: TN (occurrence: TN)
  Receive Date: 20150721
  Receipt Date: 20150721
  Transmission Date: 20151125
  Serious: Yes (Other)
  Sender: FDA-Public Use
  Company Number: TN-EMD SERONO-8034194

PATIENT
  Age: 43 Year
  Sex: Female

DRUGS (1)
  1. REBIF [Suspect]
     Active Substance: INTERFERON BETA-1A
     Indication: MULTIPLE SCLEROSIS
     Dates: start: 20130903

REACTIONS (4)
  - Contusion [Unknown]
  - Injection site erythema [Unknown]
  - Injection site bruising [Unknown]
  - Haemorrhage [Unknown]

NARRATIVE: CASE EVENT DATE: 20130903
